FAERS Safety Report 19500065 (Version 1)
Quarter: 2021Q3

REPORT INFORMATION
  Report Type: Spontaneous
  Country: US (occurrence: US)
  Receive Date: 20210706
  Receipt Date: 20210706
  Transmission Date: 20211014
  Serious: Yes (Hospitalization, Disabling)
  Sender: FDA-Public Use
  Company Number: US-ELI_LILLY_AND_COMPANY-US202106012996

PATIENT
  Sex: Male

DRUGS (2)
  1. HUMALOG [Suspect]
     Active Substance: INSULIN LISPRO
     Indication: TYPE 2 DIABETES MELLITUS
     Dosage: UNK UNK, UNKNOWN
     Route: 065
     Dates: start: 2006
  2. VANCOMYCIN [Concomitant]
     Active Substance: VANCOMYCIN
     Indication: WOUND

REACTIONS (4)
  - Limb discomfort [Recovering/Resolving]
  - Blood blister [Not Recovered/Not Resolved]
  - Wound [Recovering/Resolving]
  - Diabetic foot infection [Recovering/Resolving]

NARRATIVE: CASE EVENT DATE: 2019
